FAERS Safety Report 9321587 (Version 1)
Quarter: 2013Q2

REPORT INFORMATION
  Report Type: Spontaneous
  Country: CA (occurrence: CA)
  Receive Date: 20130531
  Receipt Date: 20130531
  Transmission Date: 20140414
  Serious: Yes (Other)
  Sender: FDA-Public Use
  Company Number: CA-TEVA-409141USA

PATIENT
  Age: 54 Year
  Sex: Female

DRUGS (5)
  1. CARBOPLATIN [Suspect]
     Dosage: 26.6667 MILLIGRAM DAILY;
     Route: 042
  2. BENADRYL [Concomitant]
  3. DEXAMETHASONE [Concomitant]
  4. ZANTAC [Concomitant]
  5. ZOFRAN [Concomitant]

REACTIONS (3)
  - Flushing [Recovered/Resolved]
  - Malaise [Recovered/Resolved]
  - Oxygen saturation decreased [Recovered/Resolved]
